FAERS Safety Report 8578456-2 (Version None)
Quarter: 2012Q3

REPORT INFORMATION
  Report Type: 
  Country: None (occurrence: None)
  Receive Date: 20120726
  Receipt Date: 20120711
  Transmission Date: 20120928
  Serious: Yes (Hospitalization)
  Sender: FDA-Public Use
  Company Number: TPA2012A04537

PATIENT
  Age: 65 Year
  Sex: Male

DRUGS (2)
  1. DEXILANT [Suspect]
     Indication: DYSPEPSIA
  2. PLAVIX [Suspect]

REACTIONS (2)
  - MYOCARDIAL INFARCTION [None]
  - THROMBOSIS [None]
